FAERS Safety Report 17437427 (Version 1)
Quarter: 2020Q1

REPORT INFORMATION
  Report Type: Spontaneous
  Country: US (occurrence: US)
  Receive Date: 20200219
  Receipt Date: 20200219
  Transmission Date: 20200409
  Serious: Yes (Hospitalization, Other)
  Sender: FDA-Public Use
  Company Number: US-NOVOPROD-713082

PATIENT
  Sex: Female

DRUGS (1)
  1. VICTOZA [Suspect]
     Active Substance: LIRAGLUTIDE
     Indication: TYPE 2 DIABETES MELLITUS
     Dosage: 0.6 MG, QD
     Route: 058
     Dates: start: 201907

REACTIONS (8)
  - Nervousness [Unknown]
  - Blood glucose decreased [Unknown]
  - Affective disorder [Unknown]
  - Blood glucose increased [Unknown]
  - Cataract [Unknown]
  - Hospitalisation [Unknown]
  - Intentional dose omission [Unknown]
  - Panic attack [Unknown]

NARRATIVE: CASE EVENT DATE: 201911
